FAERS Safety Report 24707609 (Version 1)
Quarter: 2024Q4

REPORT INFORMATION
  Report Type: Report from Study
  Country: US (occurrence: US)
  Receive Date: 20241206
  Receipt Date: 20241206
  Transmission Date: 20250114
  Serious: Yes (Other)
  Sender: MERCK
  Company Number: US-009507513-2412USA001312

PATIENT
  Sex: Female
  Weight: 68.027 kg

DRUGS (3)
  1. SOTATERCEPT [Suspect]
     Active Substance: SOTATERCEPT
     Indication: Pulmonary arterial hypertension
     Dosage: STRENGTH 60 MG, 1 MILLILITER, Q3W
     Route: 058
     Dates: start: 202410
  2. TADALAFIL [Concomitant]
     Active Substance: TADALAFIL
  3. TYVASO DPI [Concomitant]
     Active Substance: TREPROSTINIL
     Dosage: 80 MICROGRAM, QID

REACTIONS (4)
  - Syncope [Unknown]
  - Nasal injury [Unknown]
  - Epistaxis [Unknown]
  - Diarrhoea [Unknown]

NARRATIVE: CASE EVENT DATE: 20240101
